FAERS Safety Report 17510178 (Version 11)
Quarter: 2023Q1

REPORT INFORMATION
  Report Type: Report from Study
  Country: US (occurrence: US)
  Receive Date: 20200306
  Receipt Date: 20230201
  Transmission Date: 20230418
  Serious: No
  Sender: FDA-Public Use
  Company Number: US-PFIZER INC-2020099662

PATIENT
  Sex: Male
  Weight: 102 kg

DRUGS (3)
  1. PREGABALIN [Suspect]
     Active Substance: PREGABALIN
     Indication: Neuralgia
     Dosage: 100 MILLIGRAM
     Route: 065
     Dates: start: 2012
  2. FISH OIL [Concomitant]
     Active Substance: FISH OIL
     Indication: Coagulation time prolonged
     Dosage: 2 DOSAGE FORM, QD
     Route: 065
  3. FISH OIL [Concomitant]
     Active Substance: FISH OIL
     Dosage: 3 DOSAGE FORM, QD
     Route: 065

REACTIONS (9)
  - Blood viscosity increased [Unknown]
  - Limb discomfort [Unknown]
  - Nervousness [Unknown]
  - Nightmare [Unknown]
  - Headache [Unknown]
  - Drug hypersensitivity [Unknown]
  - Depression [Unknown]
  - Amnesia [Recovered/Resolved]
  - Drug ineffective [Unknown]
